FAERS Safety Report 21932976 (Version 9)
Quarter: 2023Q2

REPORT INFORMATION
  Report Type: Spontaneous
  Country: US (occurrence: US)
  Receive Date: 20230131
  Receipt Date: 20230616
  Transmission Date: 20230721
  Serious: No
  Sender: FDA-Public Use
  Company Number: US-Calliditas-2023CAL00081

PATIENT
  Age: 71 Year
  Sex: Female

DRUGS (8)
  1. TARPEYO [Suspect]
     Active Substance: BUDESONIDE
     Indication: Haematuria
     Dosage: 16 MG (4 MG CAPSULES) ONCE DAILY
     Route: 048
     Dates: start: 20230112
  2. FARXIGA [Concomitant]
     Active Substance: DAPAGLIFLOZIN PROPANEDIOL
  3. LOSARTAN [Concomitant]
     Active Substance: LOSARTAN
     Dosage: 50 MG BID
  4. PRAVASTATIN [Concomitant]
     Active Substance: PRAVASTATIN
  5. SERTRALINE [Concomitant]
     Active Substance: SERTRALINE HYDROCHLORIDE
  6. ALENDRONATE SODIUM [Concomitant]
     Active Substance: ALENDRONATE SODIUM
     Dosage: 70 MG ONCE WEEKLY
  7. VITAMIN D3 [Concomitant]
     Active Substance: CHOLECALCIFEROL
  8. MELATONIN [Concomitant]
     Active Substance: MELATONIN

REACTIONS (15)
  - Skin exfoliation [Recovered/Resolved]
  - Acne [Recovered/Resolved]
  - Product use complaint [Recovered/Resolved]
  - Hypertension [Recovered/Resolved]
  - Hirsutism [Recovering/Resolving]
  - Drug ineffective [Not Recovered/Not Resolved]
  - Dyspnoea [Recovering/Resolving]
  - Confusional state [Recovering/Resolving]
  - Petechiae [Recovering/Resolving]
  - Hot flush [Recovered/Resolved]
  - Impaired healing [Not Recovered/Not Resolved]
  - Papule [Recovering/Resolving]
  - Blister [Recovering/Resolving]
  - Scratch [Not Recovered/Not Resolved]
  - Wound [Not Recovered/Not Resolved]

NARRATIVE: CASE EVENT DATE: 20230101
